FAERS Safety Report 7546499-3 (Version None)
Quarter: 2011Q2

REPORT INFORMATION
  Report Type: 
  Country: None (occurrence: None)
  Receive Date: 20110614
  Receipt Date: 20110609
  Transmission Date: 20111010
  Serious: No
  Sender: FDA-Public Use
  Company Number: US-TEVA-285830USA

PATIENT
  Age: 27 Year
  Sex: Female
  Weight: 71.278 kg

DRUGS (2)
  1. PLAN B ONE-STEP [Suspect]
     Indication: POST COITAL CONTRACEPTION
     Dosage: 1.5 MILLIGRAM;
     Route: 048
     Dates: start: 20110607, end: 20110607
  2. CITALOPRAM [Concomitant]
     Indication: DEPRESSION

REACTIONS (1)
  - ERYTHEMA [None]
